FAERS Safety Report 19951901 (Version 1)
Quarter: 2021Q4

REPORT INFORMATION
  Report Type: Spontaneous
  Country: US (occurrence: US)
  Receive Date: 20211013
  Receipt Date: 20211013
  Transmission Date: 20220303
  Serious: Yes (Other)
  Sender: FDA-Public Use
  Company Number: US-NOVARTISPH-NVSC2021US229016

PATIENT
  Age: 70 Year
  Sex: Female

DRUGS (1)
  1. XIIDRA [Suspect]
     Active Substance: LIFITEGRAST
     Indication: Dry eye
     Dosage: 1 DRP, BID (INTO THE EYES)
     Route: 047
     Dates: start: 2018, end: 202109

REACTIONS (6)
  - Autoimmune disorder [Unknown]
  - Oropharyngeal blistering [Unknown]
  - Oral mucosal blistering [Unknown]
  - Pharyngeal ulceration [Unknown]
  - Stomatitis [Unknown]
  - Hypersensitivity [Unknown]
